FAERS Safety Report 18178514 (Version 1)
Quarter: 2020Q3

REPORT INFORMATION
  Report Type: Spontaneous
  Country: US (occurrence: US)
  Receive Date: 20200821
  Receipt Date: 20200821
  Transmission Date: 20201103
  Serious: No
  Sender: FDA-Public Use
  Company Number: US-OREXO US, INC.-ORE201907-000075

PATIENT
  Age: 24 Year
  Sex: Male

DRUGS (3)
  1. ZUBSOLV [Suspect]
     Active Substance: BUPRENORPHINE HYDROCHLORIDE\NALOXONE HYDROCHLORIDE
     Dosage: 5.7 MG/ 1.4 MG; TWICE A DAY
     Route: 060
     Dates: start: 201804
  2. GABAPENTIN. [Concomitant]
     Active Substance: GABAPENTIN
  3. ZUBSOLV [Suspect]
     Active Substance: BUPRENORPHINE HYDROCHLORIDE\NALOXONE HYDROCHLORIDE
     Indication: DEPENDENCE
     Dosage: 0.7/ 0.18 MG
     Route: 060
     Dates: start: 201803, end: 201804

REACTIONS (1)
  - Wrong technique in product usage process [Unknown]
